FAERS Safety Report 24721527 (Version 1)
Quarter: 2024Q4

REPORT INFORMATION
  Report Type: Spontaneous
  Country: US (occurrence: None)
  Receive Date: 20241210
  Receipt Date: 20241210
  Transmission Date: 20250114
  Serious: Yes (Disabling)
  Sender: Public
  Company Number: None

PATIENT
  Age: 36 Year
  Sex: Female
  Weight: 56.9 kg

DRUGS (6)
  1. FOSAMAX [Suspect]
     Active Substance: ALENDRONATE SODIUM
     Indication: Osteopenia
     Dosage: OTHER QUANTITY : 1 TABLET(S);?OTHER FREQUENCY : 1/WEEK;?
     Route: 048
     Dates: start: 20241207
  2. ASMANEX [Concomitant]
     Active Substance: MOMETASONE FUROATE
  3. VENTOLIN [Concomitant]
     Active Substance: ALBUTEROL SULFATE
  4. MELOXICAM [Concomitant]
     Active Substance: MELOXICAM
  5. SUMATRIPTAN [Concomitant]
     Active Substance: SUMATRIPTAN
  6. Gaia brand stress response multivitamin [Concomitant]

REACTIONS (4)
  - Back pain [None]
  - Mobility decreased [None]
  - Mouth ulceration [None]
  - Sleep disorder [None]

NARRATIVE: CASE EVENT DATE: 20241208
